FAERS Safety Report 17228750 (Version 1)
Quarter: 2020Q1

REPORT INFORMATION
  Report Type: Spontaneous
  Country: US (occurrence: US)
  Receive Date: 20200103
  Receipt Date: 20200103
  Transmission Date: 20200409
  Serious: Yes (Other)
  Sender: FDA-Public Use
  Company Number: US-NOVOPROD-704584

PATIENT
  Age: 62 Year
  Sex: Female

DRUGS (1)
  1. TRESIBA [Suspect]
     Active Substance: INSULIN DEGLUDEC
     Indication: TYPE 1 DIABETES MELLITUS
     Dosage: 3 IU
     Route: 058

REACTIONS (9)
  - Pancreatic disorder [Not Recovered/Not Resolved]
  - Injection site bruising [Not Recovered/Not Resolved]
  - Malaise [Not Recovered/Not Resolved]
  - Injection site mass [Recovered/Resolved]
  - Cough [Not Recovered/Not Resolved]
  - Paraesthesia [Recovered/Resolved]
  - Blood glucose increased [Not Recovered/Not Resolved]
  - Hyperhidrosis [Recovered/Resolved]
  - Bowel movement irregularity [Recovered/Resolved]

NARRATIVE: CASE EVENT DATE: 2019
